FAERS Safety Report 8979504 (Version 2)
Quarter: 2013Q1

REPORT INFORMATION
  Report Type: Report from Study
  Country: US (occurrence: US)
  Receive Date: 20121221
  Receipt Date: 20130121
  Transmission Date: 20140127
  Serious: Yes (Hospitalization)
  Sender: FDA-Public Use
  Company Number: US-009507513-1210USA012300

PATIENT
  Age: 16 Year
  Sex: Female
  Weight: 54 kg

DRUGS (4)
  1. RALTEGRAVIR POTASSIUM [Suspect]
     Indication: HIV INFECTION
     Dosage: UNK
     Route: 048
     Dates: start: 20110702
  2. RALTEGRAVIR POTASSIUM [Suspect]
     Dosage: 400 MG, BID
     Route: 048
     Dates: start: 20101113, end: 20110513
  3. ABACAVIR SULFATE AND LAMIVUDINE [Suspect]
     Indication: HIV INFECTION
     Dosage: UNK, BID
     Route: 048
     Dates: start: 20110702, end: 20110706
  4. ZOLOFT [Concomitant]
     Indication: DEPRESSION
     Dosage: UNK, QD
     Route: 048
     Dates: end: 20110706

REACTIONS (2)
  - Abdominal pain [Recovered/Resolved]
  - Gastritis [Recovering/Resolving]
